FAERS Safety Report 17025676 (Version 1)
Quarter: 2019Q4

REPORT INFORMATION
  Report Type: Spontaneous
  Country: US (occurrence: US)
  Receive Date: 20191008
  Receipt Date: 20191008
  Transmission Date: 20200122
  Serious: Yes (Life-Threatening, Hospitalization)
  Sender: FDA-Public Use
  Company Number: None

PATIENT
  Age: 62 Year
  Sex: Female
  Weight: 53.07 kg

DRUGS (6)
  1. COMBIPATCH (ESTRADIOL/NORETHINDRONE ACETATE TRANSDERMAL SYSTEM) [Suspect]
     Active Substance: ESTRADIOL\NORETHINDRONE ACETATE
     Indication: OSTEOPENIA
     Dosage: ?          QUANTITY:1/2 PATCH;OTHER ROUTE:ON THE SKIN?DURATION: 6 OR 7 YEARS?
     Dates: end: 20190722
  2. CALCIUM WITH VITAMIN D [Concomitant]
     Active Substance: CALCIUM\VITAMIN D
  3. RETIN A FACE CREME [Concomitant]
  4. MORRIN [Concomitant]
  5. LUTEIN [Concomitant]
     Active Substance: LUTEIN
  6. ALEVE [Concomitant]
     Active Substance: NAPROXEN SODIUM

REACTIONS (1)
  - Invasive ductal breast carcinoma [None]

NARRATIVE: CASE EVENT DATE: 20190725
